FAERS Safety Report 7541945-3 (Version None)
Quarter: 2011Q2

REPORT INFORMATION
  Report Type: 
  Country: None (occurrence: None)
  Receive Date: 20110613
  Receipt Date: 20110602
  Transmission Date: 20111010
  Serious: Yes (Other)
  Sender: FDA-Public Use
  Company Number: AU-ASTRAZENECA-2011SE22845

PATIENT
  Age: 63 Year
  Sex: Female

DRUGS (2)
  1. ARIMIDEX [Suspect]
     Route: 048
     Dates: start: 20071101
  2. ENOXAPARIN SODIUM [Concomitant]

REACTIONS (9)
  - WEIGHT DECREASED [None]
  - ALOPECIA [None]
  - ANAEMIA [None]
  - ARTHRALGIA [None]
  - JOINT STIFFNESS [None]
  - PULMONARY EMBOLISM [None]
  - ADENOMA BENIGN [None]
  - HAIR GROWTH ABNORMAL [None]
  - HOT FLUSH [None]
